FAERS Safety Report 17540960 (Version 2)
Quarter: 2020Q2

REPORT INFORMATION
  Report Type: Spontaneous
  Country: None (occurrence: US)
  Receive Date: 20200313
  Receipt Date: 20200508
  Transmission Date: 20200713
  Serious: Yes (Disabling)
  Sender: FDA-Public Use
  Company Number: US-I-HEALTH, INC.-2081611

PATIENT
  Age: 34 Year
  Sex: Female
  Weight: 48.18 kg

DRUGS (1)
  1. AZO URINARY TRACT DEFENSE ANTIBACTERIAL PROTECTION [Suspect]
     Active Substance: METHENAMINE\SODIUM SALICYLATE
     Indication: URINARY TRACT INFECTION
     Route: 048
     Dates: start: 20200221, end: 20200221

REACTIONS (1)
  - Deafness neurosensory [Not Recovered/Not Resolved]

NARRATIVE: CASE EVENT DATE: 20200221
